FAERS Safety Report 10552729 (Version 1)
Quarter: 2014Q4

REPORT INFORMATION
  Report Type: Spontaneous
  Country: US (occurrence: US)
  Receive Date: 20141029
  Receipt Date: 20141029
  Transmission Date: 20150529
  Serious: Yes (Hospitalization, Other)
  Sender: FDA-Public Use
  Company Number: US-BAUSCH-BL-2014-007197

PATIENT
  Sex: Female

DRUGS (1)
  1. XENAZINE [Suspect]
     Active Substance: TETRABENAZINE
     Indication: DYSKINESIA
     Dosage: 25MG Q AM, 12.5MG Q PM
     Route: 048
     Dates: start: 20131016

REACTIONS (4)
  - Hypertension [Unknown]
  - Off label use [Unknown]
  - Loss of consciousness [Unknown]
  - Urinary tract infection [Unknown]
